FAERS Safety Report 12595101 (Version 1)
Quarter: 2016Q3

REPORT INFORMATION
  Report Type: Spontaneous
  Country: US (occurrence: US)
  Receive Date: 20160726
  Receipt Date: 20160726
  Transmission Date: 20161109
  Serious: No
  Sender: FDA-Public Use
  Company Number: US-UNITED THERAPEUTICS-UNT-2015-016600

PATIENT
  Age: 12 Year
  Sex: Female
  Weight: 30.2 kg

DRUGS (12)
  1. TYVASO [Suspect]
     Active Substance: TREPROSTINIL
     Dosage: UNK
  2. LETAIRIS [Suspect]
     Active Substance: AMBRISENTAN
     Indication: PULMONARY ARTERIAL HYPERTENSION
     Dosage: 10 MG, QD
     Route: 048
     Dates: start: 20100226
  3. ORENITRAM [Suspect]
     Active Substance: TREPROSTINIL
     Dosage: 3 MG, BID
     Route: 048
  4. TYVASO [Suspect]
     Active Substance: TREPROSTINIL
     Indication: PULMONARY ARTERIAL HYPERTENSION
     Dosage: 60 ?G, QID
     Dates: start: 20110617
  5. DIGOXIN. [Concomitant]
     Active Substance: DIGOXIN
     Indication: PRODUCT USED FOR UNKNOWN INDICATION
  6. ORENITRAM [Suspect]
     Active Substance: TREPROSTINIL
     Indication: PULMONARY ARTERIAL HYPERTENSION
     Dosage: 3 MG, Q12H
     Route: 048
  7. ORENITRAM [Suspect]
     Active Substance: TREPROSTINIL
     Dosage: 0.25 MG, BID
     Route: 048
     Dates: start: 20151117, end: 20160214
  8. TYVASO [Suspect]
     Active Substance: TREPROSTINIL
     Dosage: UNK
  9. REVATIO [Suspect]
     Active Substance: SILDENAFIL CITRATE
     Indication: PULMONARY ARTERIAL HYPERTENSION
     Dosage: 20 MG, TID
     Route: 065
  10. SYMBICORT [Concomitant]
     Active Substance: BUDESONIDE\FORMOTEROL FUMARATE DIHYDRATE
     Indication: PRODUCT USED FOR UNKNOWN INDICATION
     Dosage: 2 MG, BID
     Route: 065
  11. ORENITRAM [Suspect]
     Active Substance: TREPROSTINIL
     Indication: PULMONARY ARTERIAL HYPERTENSION
     Dosage: 1 MG, BID
     Route: 048
     Dates: start: 20151112, end: 20160208
  12. LETAIRIS [Suspect]
     Active Substance: AMBRISENTAN
     Dosage: UNK
     Route: 048

REACTIONS (11)
  - Dyspepsia [Unknown]
  - Phobia [Unknown]
  - Skin irritation [Unknown]
  - Vomiting [Recovered/Resolved]
  - Decreased appetite [Recovered/Resolved]
  - Depression [Unknown]
  - Nausea [Recovered/Resolved]
  - Product use issue [Unknown]
  - Abdominal discomfort [Recovered/Resolved]
  - Dyspnoea [Recovered/Resolved]
  - Oedema [Recovered/Resolved]

NARRATIVE: CASE EVENT DATE: 201512
